FAERS Safety Report 5619669-9 (Version None)
Quarter: 2008Q1

REPORT INFORMATION
  Report Type: 
  Country: None (occurrence: None)
  Receive Date: 20080206
  Receipt Date: 20080131
  Transmission Date: 20080703
  Serious: Yes (Life-Threatening, Other)
  Sender: FDA-Public Use
  Company Number: 163-21880-07121470

PATIENT
  Age: 68 Year
  Sex: Male

DRUGS (12)
  1. REVLIMID [Suspect]
     Indication: CYTOGENETIC ANALYSIS ABNORMAL
     Dosage: 15 MG, DAILY X 21/28 DAYS, ORAL, 15 MG, DAILY, ORAL
     Route: 048
     Dates: start: 20071207, end: 20071223
  2. REVLIMID [Suspect]
     Indication: MULTIPLE MYELOMA
     Dosage: 15 MG, DAILY X 21/28 DAYS, ORAL, 15 MG, DAILY, ORAL
     Route: 048
     Dates: start: 20071207, end: 20071223
  3. REVLIMID [Suspect]
     Indication: CYTOGENETIC ANALYSIS ABNORMAL
     Dosage: 15 MG, DAILY X 21/28 DAYS, ORAL, 15 MG, DAILY, ORAL
     Route: 048
     Dates: start: 20080114
  4. REVLIMID [Suspect]
     Indication: MULTIPLE MYELOMA
     Dosage: 15 MG, DAILY X 21/28 DAYS, ORAL, 15 MG, DAILY, ORAL
     Route: 048
     Dates: start: 20080114
  5. DEXAMETHASONE TAB [Concomitant]
  6. LIPITOR [Concomitant]
  7. ALLOPURINOL [Concomitant]
  8. LORAZEPAM [Concomitant]
  9. TRICOR [Concomitant]
  10. ACETYLSALICYLIC ACID SRT [Concomitant]
  11. DILTIAZEM [Concomitant]
  12. VELCADE [Concomitant]

REACTIONS (3)
  - ACUTE MYOCARDIAL INFARCTION [None]
  - STENT OCCLUSION [None]
  - THROMBOSIS IN DEVICE [None]
